FAERS Safety Report 19330199 (Version 1)
Quarter: 2021Q2

REPORT INFORMATION
  Report Type: Spontaneous
  Country: IE (occurrence: IE)
  Receive Date: 20210529
  Receipt Date: 20210529
  Transmission Date: 20210717
  Serious: Yes (Other)
  Sender: FDA-Public Use
  Company Number: IE-AUROBINDO-AUR-APL-2021-021514

PATIENT
  Sex: Male

DRUGS (2)
  1. OXYNORM [Suspect]
     Active Substance: OXYCODONE HYDROCHLORIDE
     Indication: PRODUCT USED FOR UNKNOWN INDICATION
     Dosage: UNK
     Route: 065
  2. PIPERACILLIN AND TAZOBACTAM [Suspect]
     Active Substance: PIPERACILLIN SODIUM\TAZOBACTAM SODIUM
     Indication: VASCULAR GRAFT INFECTION
     Dosage: FREQUENCY: CONTINUOUS INFUSION (CI)
     Route: 042
     Dates: start: 20210415

REACTIONS (6)
  - Restlessness [Unknown]
  - Malaise [Unknown]
  - Confusional state [Unknown]
  - Irregular breathing [Unknown]
  - Pain [Unknown]
  - Hallucination [Unknown]

NARRATIVE: CASE EVENT DATE: 20210507
